FAERS Safety Report 5768001-9 (Version None)
Quarter: 2008Q2

REPORT INFORMATION
  Report Type: 
  Country: None (occurrence: None)
  Receive Date: 20080612
  Receipt Date: 20080520
  Transmission Date: 20081010
  Serious: Yes (Disabling, Other)
  Sender: FDA-Public Use
  Company Number: US-ABBOTT-08P-163-0455595-00

PATIENT
  Age: 60 Year
  Sex: Male

DRUGS (2)
  1. TRICOR [Suspect]
     Indication: BLOOD TRIGLYCERIDES INCREASED
     Dates: start: 20020101
  2. SIMVASTATIN [Concomitant]
     Indication: DRUG USE FOR UNKNOWN INDICATION

REACTIONS (12)
  - ABDOMINAL PAIN UPPER [None]
  - ANXIETY [None]
  - ARTHRALGIA [None]
  - ASTHENIA [None]
  - BACK PAIN [None]
  - CARDIAC DISORDER [None]
  - COCCYDYNIA [None]
  - DEPRESSION [None]
  - DEVICE ELECTRICAL FINDING [None]
  - FATIGUE [None]
  - MOBILITY DECREASED [None]
  - PAIN IN EXTREMITY [None]
